FAERS Safety Report 26123065 (Version 1)
Quarter: 2025Q4

REPORT INFORMATION
  Report Type: Spontaneous
  Country: US (occurrence: US)
  Receive Date: 20251204
  Receipt Date: 20251204
  Transmission Date: 20260118
  Serious: Yes (Other)
  Sender: MERCK SHARP & DOHME LLC
  Company Number: US-009507513-2353870

PATIENT
  Age: 44 Year
  Sex: Female

DRUGS (2)
  1. PEMBROLIZUMAB [Suspect]
     Active Substance: PEMBROLIZUMAB
     Indication: Clear cell renal cell carcinoma
  2. LEVOTHYROXINE [Concomitant]
     Active Substance: LEVOTHYROXINE
     Indication: Immune-mediated thyroiditis

REACTIONS (5)
  - Optic neuritis [Recovering/Resolving]
  - Adrenal insufficiency [Recovering/Resolving]
  - Thyroiditis [Recovering/Resolving]
  - Herpes simplex [Recovering/Resolving]
  - Secondary hypogonadism [Recovering/Resolving]
